FAERS Safety Report 10034976 (Version 1)
Quarter: 2014Q1

REPORT INFORMATION
  Report Type: Spontaneous
  Country: US (occurrence: None)
  Receive Date: 20140306
  Receipt Date: 20140306
  Transmission Date: 20141002
  Serious: Yes (Other)
  Sender: FDA-Public Use
  Company Number: 163-21880-13032290

PATIENT
  Age: 68 Year
  Sex: Male

DRUGS (17)
  1. REVLIMID (LENALIDOMIDE) (10 MILLIGRAM, CAPSULES) [Suspect]
     Indication: CHRONIC LYMPHOCYTIC LEUKAEMIA
     Route: 048
     Dates: start: 20121113, end: 20130228
  2. SYNTHROID (LEVOTHYROXINE SODIUM) (CAPSULES) [Concomitant]
  3. DORZOLAMIDE-TIMOLOL (COSOPT) (UNKNOWN) [Concomitant]
  4. FLUCONAZOLE (FLUCONAZOLE) (TABLETS) [Concomitant]
  5. ZOLPIDEM (ZOLPIDEM) (TABLETS) [Concomitant]
  6. LANSOPRAZOLE (LANSOPRAZOLE) (CAPSULES) [Concomitant]
  7. LISINOPRIL (LISINOPRIL) TABLETS) [Concomitant]
  8. AZELASTINE (AZELASTINE) (0.1 PERCENT, SPRAY (NOT INHALATION)) [Concomitant]
  9. LEVOFLOXACIN (LEVOFLOXACIN) (TABLETS) [Concomitant]
  10. ACYCLOVIR (ACICLOVIR) (TABLETS) [Concomitant]
  11. LATANOPROST (LATANOPROST) (UNKNOWN) [Concomitant]
  12. SULFAMETH/TRIMETHOPRIM (BACTRIM) (UNKNOWN) [Concomitant]
  13. ALENDRONATE (ALENDRONATE SODIUM) (TABLETS) [Concomitant]
  14. ANDROGEL (TESTOSTERONE) (UNKNOWN) [Concomitant]
  15. BACTRIM DS (BACTRIM) (UNKNOWN) [Concomitant]
  16. VITAMINS (VITAMINS) (UNKNOWN) [Concomitant]
  17. EYE DROPS (TETRYZOLINE HYDROCHLORIDE) (EYE DROPS) [Concomitant]

REACTIONS (1)
  - Pancytopenia [None]
